FAERS Safety Report 4808116-2 (Version None)
Quarter: 2005Q4

REPORT INFORMATION
  Report Type: 
  Country: None (occurrence: None)
  Receive Date: 20051021
  Receipt Date: 20051010
  Transmission Date: 20060501
  Serious: Yes (Other)
  Sender: FDA-Public Use
  Company Number: HQWYE951010OCT05

PATIENT
  Age: 49 Year
  Sex: Female
  Weight: 73.09 kg

DRUGS (7)
  1. PHENERGAN [Suspect]
     Indication: NAUSEA
  2. PHENERGAN [Suspect]
     Indication: VOMITING
  3. PEGINTRON (PEGINTERFERON ALFA-2B) [Suspect]
     Indication: HEPATITIS C
     Dosage: 0.096 MG 1X PER 1 WK, SUBCUTANEOUS
     Route: 058
     Dates: start: 20050511, end: 20050602
  4. REBETOL [Suspect]
     Indication: HEPATITIS C
     Dosage: 800 MG 1X PER 1 DAY, ORAL
     Route: 048
  5. XANAX [Concomitant]
  6. RESTORIL [Concomitant]
  7. MULTIVITAMINS, PLAIN (MULTIVITAMINS, PLAIN) [Concomitant]

REACTIONS (28)
  - ABDOMINAL PAIN [None]
  - APHASIA [None]
  - BACK INJURY [None]
  - CEREBROVASCULAR ACCIDENT [None]
  - CONSTIPATION [None]
  - CONVULSION [None]
  - DEPRESSION [None]
  - DIARRHOEA [None]
  - DYSKINESIA [None]
  - FOAMING AT MOUTH [None]
  - HEADACHE [None]
  - HEMIPARESIS [None]
  - HYPERHIDROSIS [None]
  - INFLUENZA LIKE ILLNESS [None]
  - LIVER DISORDER [None]
  - LOSS OF CONSCIOUSNESS [None]
  - MALAISE [None]
  - MUSCLE DISORDER [None]
  - MUSCLE SPASMS [None]
  - MYALGIA [None]
  - MYOCARDIAL INFARCTION [None]
  - NAUSEA [None]
  - NECK PAIN [None]
  - PAIN [None]
  - PARAESTHESIA [None]
  - PYREXIA [None]
  - SENSORY LOSS [None]
  - VOMITING [None]
